FAERS Safety Report 11423178 (Version 1)
Quarter: 2015Q3

REPORT INFORMATION
  Report Type: Report from Study
  Country: JP (occurrence: JP)
  Receive Date: 20150827
  Receipt Date: 20150827
  Transmission Date: 20151125
  Serious: Yes (Death)
  Sender: FDA-Public Use
  Company Number: JP-OTSUKA-2015_007958

PATIENT

DRUGS (9)
  1. DOBUPUM [Concomitant]
     Active Substance: DOBUTAMINE HYDROCHLORIDE
     Indication: CARDIAC FAILURE
     Dosage: 3 ?G/KG/MIN
     Route: 041
     Dates: start: 20150603, end: 20150606
  2. SULBACILLIN [Concomitant]
     Active Substance: AMPICILLIN SODIUM\SULBACTAM SODIUM
     Indication: PRODUCT USED FOR UNKNOWN INDICATION
     Dosage: 1.5 G/DAY
     Route: 042
     Dates: start: 20150603, end: 20150609
  3. CLEXANE [Concomitant]
     Active Substance: ENOXAPARIN SODIUM
     Indication: PRODUCT USED FOR UNKNOWN INDICATION
     Dosage: 4 KIU/DAY
     Route: 058
     Dates: start: 20150603, end: 20150606
  4. LASIX M [Concomitant]
     Active Substance: FUROSEMIDE
     Indication: CARDIAC FAILURE
     Dosage: 40 MG/DAY
     Route: 042
     Dates: start: 20150603, end: 20150606
  5. MYOCOR [Concomitant]
     Indication: CARDIAC FAILURE
     Dosage: 25 MG/DAY
     Route: 042
     Dates: start: 20150603, end: 20150607
  6. TOLVAPTAN [Suspect]
     Active Substance: TOLVAPTAN
     Indication: OEDEMA DUE TO CARDIAC DISEASE
     Dosage: 15 MG, QD
     Route: 048
     Dates: start: 20150603, end: 20150606
  7. NEOPHAGEN [Concomitant]
     Active Substance: GLYCYRRHIZIN
     Indication: PRODUCT USED FOR UNKNOWN INDICATION
     Dosage: 80 ML/DAY
     Route: 042
     Dates: start: 20150603, end: 20150606
  8. NIFEDIPINE. [Concomitant]
     Active Substance: NIFEDIPINE
     Indication: PRODUCT USED FOR UNKNOWN INDICATION
     Dosage: 20 MG/DAY
     Route: 048
     Dates: end: 20150609
  9. DOPAMINE [Concomitant]
     Active Substance: DOPAMINE\DOPAMINE HYDROCHLORIDE
     Indication: CARDIAC FAILURE
     Dosage: 3 ?G/KG/MIN
     Route: 041
     Dates: start: 20150603, end: 20150606

REACTIONS (1)
  - Ischaemic hepatitis [Fatal]
